FAERS Safety Report 6642853-2 (Version None)
Quarter: 2010Q1

REPORT INFORMATION
  Report Type: 
  Country: None (occurrence: None)
  Receive Date: 20100319
  Receipt Date: 20100308
  Transmission Date: 20100710
  Serious: Yes (Hospitalization, Other)
  Sender: FDA-Public Use
  Company Number: SE-PFIZER INC-2009279519

PATIENT
  Age: 56 Year
  Sex: Male

DRUGS (10)
  1. SOMATROPIN [Suspect]
     Indication: GROWTH HORMONE DEFICIENCY
     Dosage: 0.30
     Route: 058
     Dates: start: 20000523, end: 20090323
  2. VIAGRA [Concomitant]
     Indication: ERECTILE DYSFUNCTION
     Dosage: 25 MG, AS NEEDED
     Dates: start: 20000815
  3. LEVOTHYROXINE [Concomitant]
     Indication: HYPOTHYROIDISM
     Dosage: 125 UG, 1X/DAY
     Dates: start: 20020708
  4. HYDROCORTISONE [Concomitant]
     Indication: ADRENAL INSUFFICIENCY
     Dosage: 10 MG, 2X/DAY
     Dates: start: 20030701
  5. SELOKEN ZOC [Concomitant]
     Indication: HYPERTENSION
     Dosage: 100 MG, 1X/DAY
     Dates: start: 20060215
  6. TESTOSTERONE [Concomitant]
     Indication: HYPOGONADISM
     Dosage: 250 MG, WEEKLY
     Route: 030
     Dates: start: 19930701
  7. TESTOSTERONE [Concomitant]
     Dosage: 1000 MG, EVERY 12 WEEK
     Route: 030
     Dates: start: 20060316
  8. ESIDRIX [Concomitant]
     Indication: HYPERTENSION
     Dosage: 25 MG, 1X/DAY
     Dates: start: 20061001
  9. SIMVASTATIN [Concomitant]
     Indication: HYPERLIPIDAEMIA
     Dosage: 20 MG, 1X/DAY
     Dates: start: 20070601
  10. CORTISONE ACETATE [Concomitant]
     Dosage: 20 MG, 1X/DAY
     Dates: start: 19930701

REACTIONS (1)
  - COLON CANCER [None]
